FAERS Safety Report 5191475-1 (Version None)
Quarter: 2006Q4

REPORT INFORMATION
  Report Type: 
  Country: None (occurrence: None)
  Receive Date: 20061219
  Receipt Date: 20061219
  Transmission Date: 20070319
  Serious: Yes (Hospitalization)
  Sender: FDA-Public Use
  Company Number: None

PATIENT
  Sex: Male

DRUGS (2)
  1. CETUXIMAB [Suspect]
     Indication: NEOPLASM MALIGNANT
     Dosage: 430 MG/WEEKLY IV
     Route: 042
     Dates: start: 20061114
  2. CISPLATIN [Suspect]
     Indication: NEOPLASM MALIGNANT
     Dosage: 52 MG/WEEKLY IV
     Route: 042
     Dates: start: 20061121

REACTIONS (2)
  - BACTERAEMIA [None]
  - CATHETER RELATED INFECTION [None]
